FAERS Safety Report 10412701 (Version 1)
Quarter: 2014Q3

REPORT INFORMATION
  Report Type: Spontaneous
  Country: TR (occurrence: TR)
  Receive Date: 20140827
  Receipt Date: 20140827
  Transmission Date: 20150326
  Serious: Yes (Hospitalization)
  Sender: FDA-Public Use
  Company Number: TR-NOVOPROD-420275

PATIENT
  Age: 40 Year
  Sex: Female
  Weight: 60 kg

DRUGS (6)
  1. ACTRAPID [Suspect]
     Active Substance: INSULIN HUMAN
     Indication: GESTATIONAL DIABETES
     Dosage: 32 U, QD
     Route: 058
     Dates: start: 20140818
  2. PROVITAL [Concomitant]
     Dosage: HAFTADA 1
     Route: 058
     Dates: start: 201405
  3. MAGNORM [Concomitant]
     Dosage: 1X1
     Route: 048
     Dates: start: 201405
  4. INSULATARD HM PENFILL [Suspect]
     Active Substance: INSULIN NOS
     Indication: GESTATIONAL DIABETES
     Dosage: 8 U, QD
     Route: 058
     Dates: start: 20140818
  5. PROGESTAN [Concomitant]
     Active Substance: PROGESTERONE
     Dosage: 1X2
     Route: 048
     Dates: start: 201405
  6. DECAVIT                            /06014801/ [Concomitant]
     Dosage: 1X1
     Route: 048
     Dates: start: 201405

REACTIONS (2)
  - Exposure during pregnancy [Unknown]
  - Premature labour [Not Recovered/Not Resolved]

NARRATIVE: CASE EVENT DATE: 20140818
